FAERS Safety Report 20261747 (Version 2)
Quarter: 2022Q1

REPORT INFORMATION
  Report Type: Spontaneous
  Country: MK (occurrence: MK)
  Receive Date: 20211231
  Receipt Date: 20220112
  Transmission Date: 20220423
  Serious: Yes (Other)
  Sender: FDA-Public Use
  Company Number: MK-TEVA-2021-MK-1993042

PATIENT
  Age: 50 Year
  Sex: Male

DRUGS (3)
  1. MYCOPHENOLATE MOFETIL [Suspect]
     Active Substance: MYCOPHENOLATE MOFETIL
     Indication: Prophylaxis against graft versus host disease
     Dosage: 2 GRAM DAILY; FOR 28 DAYS
     Route: 065
  2. CYCLOSPORINE [Suspect]
     Active Substance: CYCLOSPORINE
     Indication: Prophylaxis against graft versus host disease
     Route: 042
  3. CYCLOPHOSPHAMIDE [Suspect]
     Active Substance: CYCLOPHOSPHAMIDE
     Indication: Prophylaxis against graft versus host disease
     Dosage: ON DAYS 3 AND 5 AFTER TRANSPLANT
     Route: 065

REACTIONS (7)
  - Lower respiratory tract infection bacterial [Unknown]
  - Stenotrophomonas infection [Unknown]
  - Staphylococcal infection [Unknown]
  - Enterococcal infection [Unknown]
  - Cytomegalovirus infection reactivation [Recovered/Resolved]
  - Cytomegalovirus colitis [Recovered/Resolved]
  - Ejection fraction decreased [Unknown]
